FAERS Safety Report 9841340 (Version 1)
Quarter: 2013Q4

REPORT INFORMATION
  Report Type: Spontaneous
  Country: US (occurrence: None)
  Receive Date: 20131219
  Receipt Date: 20131219
  Transmission Date: 20140711
  Serious: Yes (Other)
  Sender: FDA-Public Use
  Company Number: 163-20785-10051348

PATIENT
  Age: 56 Year
  Sex: Male

DRUGS (8)
  1. THALOMID [Suspect]
     Dosage: 100 MG, 2 IN 1 D, PO
     Route: 048
     Dates: start: 200311
  2. DEXAMETHASONE (DEXAMETHASONE) TABLETS [Concomitant]
  3. PREVACID (LANSOPRAZOLE) [Concomitant]
  4. ACYCLOVIR (ACICLOVIR) (ACICLOVIR) [Concomitant]
  5. SUPER B (COMPLEX (B-KOMPLEX ^LEVICA^) [Concomitant]
  6. ASA (ACETYLSALICYLIC ACID) [Concomitant]
  7. SULFAMETHOXAZOLE / TRIMETHOPRIM (BACTRIM) (TABLETS) [Concomitant]
  8. ENDOCET (OXYCOCET) (TABLETS) [Concomitant]

REACTIONS (2)
  - Deep vein thrombosis [None]
  - Neuropathy peripheral [None]
